FAERS Safety Report 7387658-2 (Version None)
Quarter: 2011Q1

REPORT INFORMATION
  Report Type: 
  Country: None (occurrence: None)
  Receive Date: 20110331
  Receipt Date: 20110323
  Transmission Date: 20110831
  Serious: Yes (Hospitalization)
  Sender: FDA-Public Use
  Company Number: DE-BAXTER-2011BH004413

PATIENT
  Age: 26 Year
  Sex: Female
  Weight: 56 kg

DRUGS (6)
  1. UROMITEXAN BAXTER [Suspect]
     Indication: PROPHYLAXIS
     Route: 042
     Dates: start: 20110223, end: 20110308
  2. FORTECORTIN [Concomitant]
     Indication: NAUSEA
     Route: 042
     Dates: start: 20110308, end: 20110308
  3. CYCLOPHOSPHAMIDE [Suspect]
     Indication: BREAST CANCER
     Route: 042
     Dates: start: 20110223, end: 20110308
  4. EPIRUBICIN [Suspect]
     Indication: BREAST CANCER
     Route: 065
  5. TAXOL [Suspect]
     Indication: BREAST CANCER
     Route: 065
  6. ZOFRAN [Concomitant]
     Indication: NAUSEA
     Route: 042
     Dates: start: 20110308, end: 20110308

REACTIONS (4)
  - HYPERSENSITIVITY [None]
  - PARANASAL SINUS DISCOMFORT [None]
  - FEELING HOT [None]
  - RASH [None]
